FAERS Safety Report 8765459 (Version 1)
Quarter: 2012Q4

REPORT INFORMATION
  Report Type: 
  Country: GB (occurrence: GB)
  Receive Date: 20120902
  Receipt Date: 20120902
  Transmission Date: 20130627
  Serious: Yes (Disabling)
  Sender: FDA-Public Use
  Company Number: GB-PFIZER INC-2012212304

PATIENT
  Age: 24 Year
  Sex: Female
  Weight: 82.6 kg

DRUGS (1)
  1. VENLAFAXINE HYDROCHLORIDE [Suspect]
     Indication: POSTPARTUM DEPRESSION
     Dosage: 150mg unit dose
     Route: 048
     Dates: start: 20090823, end: 20120820

REACTIONS (7)
  - Abnormal weight gain [Recovering/Resolving]
  - Dependence [Recovered/Resolved with Sequelae]
  - Dizziness [Not Recovered/Not Resolved]
  - Headache [Not Recovered/Not Resolved]
  - Withdrawal syndrome [Unknown]
  - Depression [Unknown]
  - Psychotic behaviour [Unknown]
